FAERS Safety Report 21780758 (Version 1)
Quarter: 2022Q4

REPORT INFORMATION
  Report Type: Spontaneous
  Country: US (occurrence: US)
  Receive Date: 20221227
  Receipt Date: 20221227
  Transmission Date: 20230113
  Serious: Yes (Hospitalization)
  Sender: FDA-Public Use
  Company Number: US-IPCA LABORATORIES LIMITED-IPC-2022-US-002152

PATIENT

DRUGS (39)
  1. WARFARIN [Interacting]
     Active Substance: WARFARIN
     Indication: Pulmonary embolism
     Dosage: 7.5 MILLIGRAM, QD
     Route: 065
  2. WARFARIN [Interacting]
     Active Substance: WARFARIN
     Dosage: 5 MILLIGRAM, QD ON TUESDAYS AND FRIDAYS ONLY
     Route: 065
  3. WARFARIN [Interacting]
     Active Substance: WARFARIN
     Dosage: 6 MILLIGRAM, QD
     Route: 065
  4. WARFARIN [Interacting]
     Active Substance: WARFARIN
     Dosage: 5 MILLIGRAM, QD ON TUESDAYS AND FRIDAYS ONLY
     Route: 065
  5. WARFARIN [Interacting]
     Active Substance: WARFARIN
     Dosage: 5 MILLIGRAM, DAY 1
     Route: 065
  6. WARFARIN [Interacting]
     Active Substance: WARFARIN
     Dosage: 7.5 MILLIGRAM DAY 2
     Route: 065
  7. WARFARIN [Interacting]
     Active Substance: WARFARIN
     Dosage: 7.5 MILLIGRAM DAY 3
     Route: 065
  8. WARFARIN [Interacting]
     Active Substance: WARFARIN
     Dosage: 7.5 MILLIGRAM DAY 4
     Route: 065
  9. WARFARIN [Interacting]
     Active Substance: WARFARIN
     Dosage: UNK, DAY 5
     Route: 065
  10. WARFARIN [Interacting]
     Active Substance: WARFARIN
     Dosage: UNK, DAY 6
     Route: 065
  11. WARFARIN [Interacting]
     Active Substance: WARFARIN
     Dosage: UNK, DAY 7
     Route: 065
  12. WARFARIN [Interacting]
     Active Substance: WARFARIN
     Dosage: UNK, DAY 8
     Route: 065
  13. WARFARIN [Interacting]
     Active Substance: WARFARIN
     Dosage: 5 MILLIGRAM, DAY 9
     Route: 065
  14. WARFARIN [Interacting]
     Active Substance: WARFARIN
     Dosage: 5 MILLIGRAM, DAY 10
     Route: 065
  15. WARFARIN [Interacting]
     Active Substance: WARFARIN
     Dosage: UNK, DAY 11
     Route: 065
  16. WARFARIN [Interacting]
     Active Substance: WARFARIN
     Dosage: 6 MILLIGRAM, DAY 12
     Route: 065
  17. DEXAMETHASONE [Interacting]
     Active Substance: DEXAMETHASONE
     Indication: COVID-19
     Dosage: 6 MILLIGRAM, QD
     Route: 048
  18. REMDESIVIR [Interacting]
     Active Substance: REMDESIVIR
     Indication: COVID-19
     Dosage: 200 MILLIGRAM, SINGLE
     Route: 042
  19. REMDESIVIR [Interacting]
     Active Substance: REMDESIVIR
     Dosage: 100 MILLIGRAM, QD FROM DAY 5
     Route: 042
  20. ACETAMINOPHEN [Concomitant]
     Active Substance: ACETAMINOPHEN
     Indication: Pain
     Dosage: 650 MILLIGRAM, QID WHEN NEEDED
     Route: 048
  21. ACETAMINOPHEN [Concomitant]
     Active Substance: ACETAMINOPHEN
     Indication: Pyrexia
  22. ALBUTEROL/ IPRATROPIUM [Concomitant]
     Indication: Breathing-related sleep disorder
     Dosage: 1 DOSAGE FORM (PUFF), Q4H, AS NEEDED
  23. ASPIRIN [Concomitant]
     Active Substance: ASPIRIN
     Indication: Product used for unknown indication
     Dosage: 81 MILLIGRAM, QD
     Route: 048
  24. ATORVASTATIN [Concomitant]
     Active Substance: ATORVASTATIN
     Indication: Product used for unknown indication
     Dosage: 40 MILLIGRAM, QD AT NIGHT
     Route: 048
  25. BUDESONIDE\FORMOTEROL [Concomitant]
     Active Substance: BUDESONIDE\FORMOTEROL
     Indication: Product used for unknown indication
     Dosage: 2 DOSAGE FORM (PUFF), BID
  26. BENZONATATE [Concomitant]
     Active Substance: BENZONATATE
     Indication: Cough
     Dosage: 100 MILLIGRAM, TID AS NEEDED
     Route: 048
  27. CHOLECALCIFEROL [Concomitant]
     Active Substance: CHOLECALCIFEROL
     Indication: Product used for unknown indication
     Dosage: 25 MICROGRAM, QD
     Route: 048
  28. DEXTROSE [Concomitant]
     Active Substance: DEXTROSE
     Indication: Hypoglycaemia
     Dosage: 25 MILLILITER
     Route: 042
  29. DOCUSATE [Concomitant]
     Active Substance: DOCUSATE
     Indication: Product used for unknown indication
     Dosage: 250 MILLIGRAM, QD
     Route: 048
  30. DORZOLAMIDE OPHTHALMIC [Concomitant]
     Indication: Product used for unknown indication
     Dosage: ONE DROP IN RIGHT EYE , TID
  31. GLUCAGON [Concomitant]
     Active Substance: GLUCAGON
     Indication: Hypoglycaemia
     Dosage: 1 MILLILITER
     Route: 030
  32. DEXTROSE [Concomitant]
     Active Substance: DEXTROSE
     Indication: Hypoglycaemia
     Dosage: 15 MILLIGRAM
     Route: 048
  33. HEPARIN [Concomitant]
     Active Substance: HEPARIN SODIUM
     Indication: Product used for unknown indication
     Dosage: 300 UNIT, BID, FLUSH MIDLINE
     Route: 065
  34. INSULIN ASPART [Concomitant]
     Active Substance: INSULIN ASPART
     Indication: Product used for unknown indication
     Dosage: SLIDING SCALE WITH MEALS AND AT BEDTIME
     Route: 065
  35. METOPROLOL TARTRATE [Concomitant]
     Active Substance: METOPROLOL TARTRATE
     Indication: Product used for unknown indication
     Dosage: 25 MILLIGRAM, QID
     Route: 048
  36. SODIUM CHLORIDE [Concomitant]
     Active Substance: SODIUM CHLORIDE
     Indication: Product used for unknown indication
     Dosage: 10 MILLILITER, BID, FLUSH MIDLINE
     Route: 065
  37. PENTOPRAZOLE EC [Concomitant]
     Indication: Product used for unknown indication
     Dosage: 20 MILLIGRAM, QD WITH BREAKFAST
     Route: 048
  38. SENNA [Concomitant]
     Active Substance: SENNA LEAF\SENNOSIDES\SENNOSIDES A AND B
     Indication: Product used for unknown indication
     Dosage: 17.2 MILLIGRAM, QD
     Route: 048
  39. TAMSULOSIN [Concomitant]
     Active Substance: TAMSULOSIN
     Indication: Product used for unknown indication
     Dosage: 0.4 MILLIGRAM, QD AT BED TIME
     Route: 048

REACTIONS (3)
  - Anticoagulation drug level above therapeutic [Recovering/Resolving]
  - Anticoagulation drug level below therapeutic [Unknown]
  - Drug interaction [Unknown]
